FAERS Safety Report 21194427 (Version 1)
Quarter: 2022Q3

REPORT INFORMATION
  Report Type: Spontaneous
  Country: US (occurrence: None)
  Receive Date: 20220809
  Receipt Date: 20220809
  Transmission Date: 20221026
  Serious: Yes (Life-Threatening, Hospitalization)
  Sender: FDA-Public Use
  Company Number: None

PATIENT
  Age: 68 Year
  Sex: Male
  Weight: 119.25 kg

DRUGS (1)
  1. USTEKINUMAB [Suspect]
     Active Substance: USTEKINUMAB
     Indication: Colitis ulcerative
     Dosage: OTHER QUANTITY : 1 INJECTION(S);?OTHER FREQUENCY : EVERY 8 WEEKS;?
     Route: 058
     Dates: start: 20220404, end: 20220626

REACTIONS (7)
  - Electrocardiogram ST segment elevation [None]
  - Pulmonary embolism [None]
  - Lung opacity [None]
  - Deep vein thrombosis [None]
  - Superficial vein thrombosis [None]
  - Deep vein thrombosis [None]
  - Venous occlusion [None]

NARRATIVE: CASE EVENT DATE: 20220714
